FAERS Safety Report 21194310 (Version 1)
Quarter: 2022Q3

REPORT INFORMATION
  Report Type: Spontaneous
  Country: US (occurrence: None)
  Receive Date: 20220809
  Receipt Date: 20220809
  Transmission Date: 20221026
  Serious: Yes (Hospitalization, Other)
  Sender: FDA-Public Use
  Company Number: None

PATIENT
  Age: 57 Year
  Sex: Male
  Weight: 112.5 kg

DRUGS (1)
  1. MAGNESIUM CITRATE [Suspect]
     Active Substance: MAGNESIUM CITRATE
     Indication: Constipation
     Dosage: OTHER QUANTITY : 1 BOTTLE;?FREQUENCY : DAILY;?
     Route: 048

REACTIONS (5)
  - Abdominal pain [None]
  - Recalled product administered [None]
  - Product contamination [None]
  - COVID-19 [None]
  - Adverse drug reaction [None]

NARRATIVE: CASE EVENT DATE: 20220623
